FAERS Safety Report 26077331 (Version 1)
Quarter: 2025Q4

REPORT INFORMATION
  Report Type: Spontaneous
  Country: US (occurrence: US)
  Receive Date: 20251121
  Receipt Date: 20251121
  Transmission Date: 20260117
  Serious: No
  Sender: NOVO NORDISK
  Company Number: US-NOVOPROD-1514546

PATIENT
  Age: 62 Year
  Sex: Male

DRUGS (3)
  1. INSULIN DEGLUDEC [Suspect]
     Active Substance: INSULIN DEGLUDEC
     Indication: Type 1 diabetes mellitus
     Dosage: 8 IU, QD
     Route: 058
     Dates: start: 202411
  2. LYRACCORD [Concomitant]
     Indication: Product used for unknown indication
     Dosage: UNK
  3. METFORMIN [Concomitant]
     Active Substance: METFORMIN HYDROCHLORIDE
     Indication: Type 1 diabetes mellitus
     Dosage: UNK

REACTIONS (5)
  - Illness [Recovered/Resolved]
  - Influenza like illness [Unknown]
  - Gait inability [Recovering/Resolving]
  - Peripheral swelling [Recovering/Resolving]
  - Nausea [Recovered/Resolved]

NARRATIVE: CASE EVENT DATE: 20250816
